FAERS Safety Report 4367969-5 (Version None)
Quarter: 2004Q2

REPORT INFORMATION
  Report Type: 
  Country: None (occurrence: None)
  Receive Date: 20040602
  Receipt Date: 20040524
  Transmission Date: 20050107
  Serious: Yes (Other)
  Sender: FDA-Public Use
  Company Number: 200415370GDDC

PATIENT
  Age: 50 Year
  Sex: Female

DRUGS (4)
  1. TAXOTERE [Suspect]
     Indication: BREAST CANCER METASTATIC
     Dosage: DOSE: UNK
  2. TAXOTERE [Suspect]
     Indication: DISEASE RECURRENCE
     Dosage: DOSE: UNK
  3. XELODA [Concomitant]
     Indication: BREAST CANCER METASTATIC
     Dosage: DOSE: UNK
  4. XELODA [Concomitant]
     Indication: DISEASE RECURRENCE
     Dosage: DOSE: UNK

REACTIONS (3)
  - ANTINUCLEAR ANTIBODY POSITIVE [None]
  - CUTANEOUS LUPUS ERYTHEMATOSUS [None]
  - PHOTOSENSITIVITY REACTION [None]
